FAERS Safety Report 15788725 (Version 1)
Quarter: 2019Q1

REPORT INFORMATION
  Report Type: Report from Study
  Country: US (occurrence: US)
  Receive Date: 20190104
  Receipt Date: 20190104
  Transmission Date: 20190417
  Serious: Yes (Hospitalization)
  Sender: FDA-Public Use
  Company Number: PHEH2018US055503

PATIENT
  Sex: Male

DRUGS (1)
  1. ENTRESTO [Suspect]
     Active Substance: SACUBITRIL\VALSARTAN
     Indication: PRODUCT USED FOR UNKNOWN INDICATION
     Route: 065

REACTIONS (12)
  - Barrett^s oesophagus [Unknown]
  - Depression [Unknown]
  - Anxiety [Unknown]
  - Haemoglobin decreased [Unknown]
  - Pneumonia [Unknown]
  - Myocardial infarction [Unknown]
  - Atrial fibrillation [Unknown]
  - Internal haemorrhage [Unknown]
  - Blood pressure fluctuation [Unknown]
  - Malignant melanoma [Unknown]
  - Cardiovascular insufficiency [Unknown]
  - Atrial flutter [Unknown]
